FAERS Safety Report 8500324-2 (Version None)
Quarter: 2012Q3

REPORT INFORMATION
  Report Type: 
  Country: None (occurrence: None)
  Receive Date: 20120710
  Receipt Date: 20120629
  Transmission Date: 20120928
  Serious: Yes (Hospitalization, Other)
  Sender: FDA-Public Use
  Company Number: US-PFIZER INC-2012158213

PATIENT
  Age: 80 Year
  Sex: Female

DRUGS (2)
  1. METHIMAZOLE [Suspect]
     Dosage: 10 MG, UNK
  2. ASPIRIN [Concomitant]
     Dosage: 81 MG, UNK

REACTIONS (1)
  - PANCREATITIS ACUTE [None]
